FAERS Safety Report 6669831-1 (Version None)
Quarter: 2010Q2

REPORT INFORMATION
  Report Type: 
  Country: None (occurrence: None)
  Receive Date: 20100406
  Receipt Date: 20100111
  Transmission Date: 20101027
  Serious: No
  Sender: FDA-Public Use
  Company Number: US-ALLERGAN-0907817US

PATIENT
  Age: 61 Year
  Sex: Female

DRUGS (2)
  1. LATISSE [Suspect]
     Indication: GROWTH OF EYELASHES
     Dosage: UNK, UNK
  2. PATANOL [Concomitant]
     Indication: SEASONAL ALLERGY
     Dosage: UNK, PRN

REACTIONS (1)
  - MADAROSIS [None]
